FAERS Safety Report 4813112-5 (Version None)
Quarter: 2005Q4

REPORT INFORMATION
  Report Type: 
  Country: None (occurrence: None)
  Receive Date: 20051028
  Receipt Date: 20050615
  Transmission Date: 20060501
  Serious: No
  Sender: FDA-Public Use
  Company Number: US-GLAXOSMITHKLINE-A0562724A

PATIENT
  Age: 72 Year
  Sex: Female
  Weight: 116.8 kg

DRUGS (9)
  1. ADVAIR DISKUS 100/50 [Suspect]
     Indication: CHRONIC OBSTRUCTIVE PULMONARY DISEASE
     Route: 055
  2. SINGULAIR [Concomitant]
     Indication: CHRONIC OBSTRUCTIVE PULMONARY DISEASE
     Dosage: 10MG PER DAY
     Dates: start: 20020101
  3. FUROSEMIDE [Concomitant]
     Dosage: 40MG TWICE PER DAY
     Dates: start: 20010101
  4. ALBUTEROL [Concomitant]
     Indication: CHRONIC OBSTRUCTIVE PULMONARY DISEASE
     Dates: start: 19990101
  5. ASPIRIN [Concomitant]
     Dosage: 81MG PER DAY
  6. POTASSIUM CHLORIDE [Concomitant]
     Dosage: 10MEQ TWICE PER DAY
  7. PROTONIX [Concomitant]
     Dosage: 40MG PER DAY
     Dates: start: 20050402
  8. METOLAZONE [Concomitant]
     Dosage: 2.5MG THREE TIMES PER WEEK
     Dates: start: 20050609
  9. MIRAPEX [Concomitant]
     Dosage: .125MG AT NIGHT
     Dates: start: 20040414

REACTIONS (1)
  - WEIGHT INCREASED [None]
